FAERS Safety Report 7247537-8 (Version None)
Quarter: 2011Q1

REPORT INFORMATION
  Report Type: 
  Country: None (occurrence: None)
  Receive Date: 20110127
  Receipt Date: 20110117
  Transmission Date: 20110831
  Serious: Yes (Other)
  Sender: FDA-Public Use
  Company Number: PHHY2011RU04610

PATIENT
  Age: 40 Year
  Sex: Female

DRUGS (1)
  1. AMOKSIKLAV [Suspect]
     Dosage: UNK
     Route: 048

REACTIONS (4)
  - DYSPNOEA [None]
  - DYSPHONIA [None]
  - PRURITUS [None]
  - RASH [None]
